FAERS Safety Report 7060694-1 (Version None)
Quarter: 2010Q4

REPORT INFORMATION
  Report Type: 
  Country: None (occurrence: None)
  Receive Date: 20101025
  Receipt Date: 20101016
  Transmission Date: 20110411
  Serious: Yes (Hospitalization)
  Sender: FDA-Public Use
  Company Number: US-ROCHE-735088

PATIENT
  Sex: Female

DRUGS (2)
  1. PEGASYS [Suspect]
     Indication: HEPATITIS C
     Dosage: FORM:PREFILLED SYRINGE
     Route: 065
     Dates: start: 20100813
  2. RIBAVIRIN [Suspect]
     Indication: HEPATITIS C
     Dosage: DIVIDED DOSES
     Route: 065
     Dates: start: 20100813

REACTIONS (5)
  - ASTHENIA [None]
  - DYSPNOEA [None]
  - HOSPITALISATION [None]
  - LETHARGY [None]
  - WHITE BLOOD CELL COUNT DECREASED [None]
